FAERS Safety Report 17207343 (Version 1)
Quarter: 2019Q4

REPORT INFORMATION
  Report Type: Spontaneous
  Country: US (occurrence: US)
  Receive Date: 20191227
  Receipt Date: 20191227
  Transmission Date: 20200122
  Serious: No
  Sender: FDA-Public Use
  Company Number: US-TEVA-2019-US-1160879

PATIENT
  Sex: Female

DRUGS (1)
  1. AUSTEDO [Suspect]
     Active Substance: DEUTETRABENAZINE
     Dosage: DOSAGE IS UNKNOWN
     Route: 065

REACTIONS (3)
  - Patient dissatisfaction with treatment [Unknown]
  - Drug ineffective [Unknown]
  - Adverse event [Unknown]
